FAERS Safety Report 8839900 (Version 1)
Quarter: 2012Q4

REPORT INFORMATION
  Report Type: Spontaneous
  Country: US (occurrence: None)
  Receive Date: 20121012
  Receipt Date: 20121012
  Transmission Date: 20130627
  Serious: Yes (Other)
  Sender: FDA-Public Use
  Company Number: None

PATIENT
  Age: 52 Year
  Sex: Female
  Weight: 78.02 kg

DRUGS (1)
  1. CYMBALTA [Suspect]
     Indication: BACK PAIN
     Route: 048
     Dates: start: 20111001, end: 20121011

REACTIONS (10)
  - Pruritus generalised [None]
  - Urticaria [None]
  - Hyperhidrosis [None]
  - Dizziness [None]
  - Hypoaesthesia [None]
  - Dyspnoea [None]
  - Palpitations [None]
  - Blood pressure increased [None]
  - Rash [None]
  - Depression [None]
